FAERS Safety Report 5880021-2 (Version None)
Quarter: 2008Q3

REPORT INFORMATION
  Report Type: 
  Country: None (occurrence: None)
  Receive Date: 20080912
  Receipt Date: 20080902
  Transmission Date: 20090109
  Serious: Yes (Hospitalization, Other)
  Sender: FDA-Public Use
  Company Number: US-PFIZER INC-2008056003

PATIENT
  Sex: Female
  Weight: 104.3 kg

DRUGS (12)
  1. LYRICA [Suspect]
     Indication: NEUROPATHY PERIPHERAL
     Route: 048
     Dates: start: 20060201
  2. ALL OTHER THERAPEUTIC PRODUCTS [Concomitant]
  3. INSULIN [Concomitant]
  4. SIMVASTATIN [Concomitant]
  5. BENICAR [Concomitant]
  6. GLIPIZIDE [Concomitant]
  7. COREG [Concomitant]
  8. LEVOXYL [Concomitant]
  9. PRILOSEC [Concomitant]
  10. ACETYLSALICYLIC ACID SRT [Concomitant]
  11. PLAVIX [Concomitant]
  12. HYDROCHLOROTHIAZIDE [Concomitant]

REACTIONS (14)
  - ABSCESS [None]
  - ALOPECIA [None]
  - BALANCE DISORDER [None]
  - CARDIAC OPERATION [None]
  - DEPRESSION [None]
  - DIZZINESS [None]
  - DYSSTASIA [None]
  - INTENTIONAL DRUG MISUSE [None]
  - MALAISE [None]
  - OEDEMA PERIPHERAL [None]
  - STENT PLACEMENT [None]
  - TACHYCARDIA [None]
  - VASCULAR GRAFT [None]
  - WEIGHT DECREASED [None]
